FAERS Safety Report 20923021 (Version 1)
Quarter: 2022Q2

REPORT INFORMATION
  Report Type: Spontaneous
  Country: FR (occurrence: FR)
  Receive Date: 20220607
  Receipt Date: 20220607
  Transmission Date: 20220721
  Serious: Yes (Hospitalization)
  Sender: FDA-Public Use
  Company Number: FR-DENTSPLY-2022SCDP000142

PATIENT
  Age: 23 Year
  Sex: Male
  Weight: 70 kg

DRUGS (4)
  1. MEPIVACAINE [Suspect]
     Active Substance: MEPIVACAINE HYDROCHLORIDE
     Indication: Nerve block
     Dosage: UNK
     Route: 053
     Dates: start: 20220513, end: 20220513
  2. ROPIVACAINE HYDROCHLORIDE [Suspect]
     Active Substance: ROPIVACAINE HYDROCHLORIDE
     Indication: Nerve block
     Dosage: UNK
     Route: 053
     Dates: start: 20220513, end: 20220513
  3. SUFENTANIL [Suspect]
     Active Substance: SUFENTANIL
     Indication: Induction and maintenance of anaesthesia
     Dosage: 25 MICROGRAM TOTAL
     Route: 041
     Dates: start: 20220513, end: 20220513
  4. CEFAZOLIN [Suspect]
     Active Substance: CEFAZOLIN
     Indication: Antibiotic prophylaxis
     Dosage: 2 GRAM TOTAL
     Route: 041
     Dates: start: 20220513, end: 20220513

REACTIONS (1)
  - Erythema [Recovered/Resolved]

NARRATIVE: CASE EVENT DATE: 20220513
